FAERS Safety Report 4702159-5 (Version None)
Quarter: 2005Q2

REPORT INFORMATION
  Report Type: 
  Country: None (occurrence: None)
  Receive Date: 20050629
  Receipt Date: 20030703
  Transmission Date: 20051028
  Serious: Yes (Hospitalization, Other)
  Sender: FDA-Public Use
  Company Number: 200312661FR

PATIENT
  Age: 57 Year
  Sex: Female

DRUGS (4)
  1. ARAVA [Suspect]
     Indication: SJOGREN'S SYNDROME
     Route: 048
     Dates: start: 20000920, end: 20030925
  2. CORTANCYL [Concomitant]
     Route: 048
  3. NEXEN [Concomitant]
     Route: 048
  4. METHOTREXATE [Concomitant]
     Route: 048
     Dates: start: 20030117

REACTIONS (11)
  - APHTHOUS STOMATITIS [None]
  - CUTANEOUS LUPUS ERYTHEMATOSUS [None]
  - DISEASE RECURRENCE [None]
  - DRUG INEFFECTIVE [None]
  - GENERAL PHYSICAL HEALTH DETERIORATION [None]
  - LEUKOPENIA [None]
  - NEUTROPENIA [None]
  - PROTEINURIA [None]
  - RASH ERYTHEMATOUS [None]
  - SUICIDAL IDEATION [None]
  - WEIGHT DECREASED [None]
